FAERS Safety Report 15505817 (Version 3)
Quarter: 2018Q4

REPORT INFORMATION
  Report Type: Spontaneous
  Country: JP (occurrence: JP)
  Receive Date: 20181016
  Receipt Date: 20181130
  Transmission Date: 20190205
  Serious: Yes (Death, Other)
  Sender: FDA-Public Use
  Company Number: JP-ROCHE-2200558

PATIENT
  Age: 41 Year
  Sex: Male

DRUGS (4)
  1. CISPLATIN. [Concomitant]
     Active Substance: CISPLATIN
     Indication: ANAPLASTIC ASTROCYTOMA
     Dosage: DOSAGE IS UNCERTAIN.
     Route: 041
  2. AVASTIN [Suspect]
     Active Substance: BEVACIZUMAB
     Indication: ANAPLASTIC ASTROCYTOMA
     Dosage: DOSAGE IS UNCERTAIN.
     Route: 041
  3. ETOPOSIDE. [Concomitant]
     Active Substance: ETOPOSIDE
     Indication: ANAPLASTIC ASTROCYTOMA
     Dosage: DOSAGE IS UNCERTAIN.
     Route: 041
  4. IFOMIDE [Concomitant]
     Active Substance: IFOSFAMIDE
     Indication: ANAPLASTIC ASTROCYTOMA
     Dosage: DOSAGE IS UNCERTAIN.
     Route: 041

REACTIONS (2)
  - Bone marrow failure [Unknown]
  - Pneumonia [Fatal]
